FAERS Safety Report 16239545 (Version 1)
Quarter: 2019Q2

REPORT INFORMATION
  Report Type: Spontaneous
  Country: DE (occurrence: DE)
  Receive Date: 20190425
  Receipt Date: 20190425
  Transmission Date: 20190711
  Serious: Yes (Other)
  Sender: FDA-Public Use
  Company Number: PHHY2019DE094121

PATIENT
  Sex: Male

DRUGS (1)
  1. CIPROFLOXACIN. [Suspect]
     Active Substance: CIPROFLOXACIN
     Indication: GALLBLADDER DISORDER
     Dosage: HOCHDOSIERTE EINNAHME
     Route: 065

REACTIONS (2)
  - Guillain-Barre syndrome [Unknown]
  - Paralysis [Unknown]

NARRATIVE: CASE EVENT DATE: 201408
